FAERS Safety Report 9189619 (Version 2)
Quarter: 2013Q2

REPORT INFORMATION
  Report Type: Spontaneous
  Country: SK (occurrence: SK)
  Receive Date: 20130326
  Receipt Date: 20130430
  Transmission Date: 20140414
  Serious: Yes (Death, Other)
  Sender: FDA-Public Use
  Company Number: SK-AMGEN-SVKSP2013019814

PATIENT
  Age: 58 Year
  Sex: Female

DRUGS (9)
  1. PEGFILGRASTIM [Suspect]
     Indication: BREAST CANCER
     Dosage: UNK
     Route: 065
  2. FILGRASTIM [Suspect]
     Indication: LEUKOPENIA
     Dosage: UNK
     Route: 065
  3. HERCEPTIN [Suspect]
     Indication: BREAST CANCER
     Dosage: UNK
     Route: 065
     Dates: start: 20100520
  4. XELODA [Suspect]
     Indication: BREAST CANCER
     Dosage: UNK
     Route: 065
  5. PACLITAXEL [Suspect]
     Indication: PRODUCT USED FOR UNKNOWN INDICATION
     Dosage: UNK
     Route: 065
  6. LAPATINIB [Suspect]
     Indication: PRODUCT USED FOR UNKNOWN INDICATION
     Dosage: UNK
     Route: 065
  7. FLUOROURACIL [Concomitant]
     Dosage: UNK
  8. EPIRUBICIN [Concomitant]
     Dosage: UNK
  9. CYCLOPHOSPHAMIDE [Concomitant]
     Dosage: UNK

REACTIONS (5)
  - Death [Fatal]
  - Deep vein thrombosis [Unknown]
  - Hepatic enzyme increased [Unknown]
  - Palmar-plantar erythrodysaesthesia syndrome [Recovered/Resolved]
  - Leukopenia [Unknown]
